FAERS Safety Report 16405063 (Version 1)
Quarter: 2019Q2

REPORT INFORMATION
  Report Type: Spontaneous
  Country: RU (occurrence: RU)
  Receive Date: 20190607
  Receipt Date: 20190607
  Transmission Date: 20190711
  Serious: Yes (Hospitalization, Other)
  Sender: FDA-Public Use
  Company Number: RU-009507513-1905RUS012597

PATIENT
  Age: 58 Year
  Sex: Female

DRUGS (1)
  1. DIPROSPAN [Suspect]
     Active Substance: BETAMETHASONE DIPROPIONATE\BETAMETHASONE SODIUM PHOSPHATE
     Indication: ARTHRITIS
     Dosage: ROUTE OF ADMINISTRATION: JOINT CAVITY
     Dates: start: 20190305

REACTIONS (3)
  - Respiratory distress [Recovering/Resolving]
  - Eyelid oedema [Recovering/Resolving]
  - Drug hypersensitivity [Unknown]

NARRATIVE: CASE EVENT DATE: 2019
